FAERS Safety Report 9924334 (Version 1)
Quarter: 2014Q1

REPORT INFORMATION
  Report Type: Report from Study
  Country: CA (occurrence: CA)
  Receive Date: 20140226
  Receipt Date: 20140226
  Transmission Date: 20141002
  Serious: Yes (Other)
  Sender: FDA-Public Use
  Company Number: CA-ROCHE-1353601

PATIENT
  Sex: Female
  Weight: 74.8 kg

DRUGS (13)
  1. RITUXAN [Suspect]
     Indication: RHEUMATOID ARTHRITIS
     Route: 042
     Dates: start: 20130304
  2. PREDNISONE [Concomitant]
  3. METHOTREXATE [Concomitant]
  4. FOLIC ACID [Concomitant]
  5. LYRICA [Concomitant]
  6. BUTRANS [Concomitant]
     Route: 065
  7. LOSEC [Concomitant]
  8. ONDANSETRON [Concomitant]
  9. GRAVOL [Concomitant]
  10. DILAUDID [Concomitant]
  11. DICLOFENAC [Concomitant]
  12. ESTROGEL [Concomitant]
  13. PROGESTERONE [Concomitant]

REACTIONS (3)
  - Cartilage injury [Unknown]
  - Osteopenia [Unknown]
  - Weight increased [Not Recovered/Not Resolved]
